FAERS Safety Report 5641557-2 (Version None)
Quarter: 2008Q1

REPORT INFORMATION
  Report Type: 
  Country: None (occurrence: None)
  Receive Date: 20080227
  Receipt Date: 20071105
  Transmission Date: 20080703
  Serious: No
  Sender: FDA-Public Use
  Company Number: A0691351A

PATIENT
  Age: 54 Year
  Sex: Male

DRUGS (2)
  1. NICORETTE [Suspect]
     Route: 002
  2. NICORETTE [Suspect]
     Route: 002

REACTIONS (7)
  - GINGIVAL PAIN [None]
  - INTENTIONAL DRUG MISUSE [None]
  - MOUTH ULCERATION [None]
  - ORAL DISCOMFORT [None]
  - ORAL PAIN [None]
  - PAIN [None]
  - STOMATITIS [None]
